FAERS Safety Report 12985650 (Version 1)
Quarter: 2016Q4

REPORT INFORMATION
  Report Type: Spontaneous
  Country: GR (occurrence: GR)
  Receive Date: 20161130
  Receipt Date: 20161130
  Transmission Date: 20170207
  Serious: Yes (Hospitalization, Other)
  Sender: FDA-Public Use
  Company Number: GR-ABBVIE-16K-066-1791647-00

PATIENT
  Age: 17 Year
  Sex: Male

DRUGS (1)
  1. HUMIRA [Suspect]
     Active Substance: ADALIMUMAB
     Indication: JUVENILE IDIOPATHIC ARTHRITIS
     Route: 058
     Dates: start: 2011

REACTIONS (3)
  - Lymphadenopathy [Not Recovered/Not Resolved]
  - Drug interaction [Unknown]
  - Toxoplasmosis [Not Recovered/Not Resolved]

NARRATIVE: CASE EVENT DATE: 201606
